FAERS Safety Report 4538511-0 (Version None)
Quarter: 2004Q4

REPORT INFORMATION
  Report Type: 
  Country: None (occurrence: None)
  Receive Date: 20041221
  Receipt Date: 20041210
  Transmission Date: 20050328
  Serious: Yes (Disabling)
  Sender: FDA-Public Use
  Company Number: S04-ITA-07674-01

PATIENT
  Age: 63 Year
  Sex: Female

DRUGS (7)
  1. ESCITALOPRAM [Suspect]
     Indication: DEPRESSION
     Dosage: 10 MG QD PO
     Route: 048
     Dates: start: 20040621, end: 20040801
  2. ESCITALOPRAM [Suspect]
     Indication: DEPRESSION
     Dates: start: 20040801, end: 20041006
  3. ALTIAZEM (DILTIAZEM HYDROCHLORIDE) [Concomitant]
  4. ENALAPRIL [Concomitant]
  5. CARDIOASPIRIN (ACETYLSALICYLIC ACID)` [Concomitant]
  6. XANAX [Concomitant]
  7. AZYR [Concomitant]

REACTIONS (7)
  - DRUG TOXICITY [None]
  - NERVE COMPRESSION [None]
  - OPTIC NERVE DISORDER [None]
  - OPTIC NEUROPATHY [None]
  - PITUITARY TUMOUR [None]
  - RETINAL VASCULAR DISORDER [None]
  - VISUAL ACUITY REDUCED [None]
